FAERS Safety Report 4447413-X (Version None)
Quarter: 2004Q3

REPORT INFORMATION
  Report Type: 
  Country: None (occurrence: None)
  Receive Date: 20040823
  Receipt Date: 20040603
  Transmission Date: 20050211
  Serious: No
  Sender: FDA-Public Use
  Company Number: PHEH2004US02416

PATIENT
  Age: 60 Year
  Sex: Female
  Weight: 51.7 kg

DRUGS (16)
  1. ZELNORM [Suspect]
     Indication: IRRITABLE BOWEL SYNDROME
     Dosage: 6 MG, BID
     Dates: start: 20040219
  2. DOCUSATE SODIUM (DOCUSATE SODIUM) [Suspect]
  3. STOOL SOFTENER (DOCUSATE SODIUM) [Suspect]
  4. CITRUCEL (METHYLCELLULOSE) [Suspect]
     Dosage: 1 TBSP/QHS
  5. BEROCCA PLUS TABLETS (RETINOL, PYRIDOXINE) [Concomitant]
  6. VITAMIN E [Concomitant]
  7. SIMETHICONE (SIMETHICONE) [Concomitant]
  8. NASAL SALINE [Concomitant]
  9. REFRESH [Concomitant]
  10. ACIDOPHILUS [Concomitant]
  11. ESTRACE VAGINAL CREAM [Concomitant]
  12. ACETYLSALICYLIC ACID [Concomitant]
  13. LIBRIUM [Concomitant]
  14. PROZAC [Concomitant]
  15. FOSAMAX [Concomitant]
  16. ASPIRIN [Concomitant]

REACTIONS (7)
  - ABDOMINAL DISTENSION [None]
  - CHILLS [None]
  - DIARRHOEA [None]
  - ERUCTATION [None]
  - FAECES HARD [None]
  - FLATULENCE [None]
  - INSOMNIA [None]
